FAERS Safety Report 25069641 (Version 1)
Quarter: 2025Q1

REPORT INFORMATION
  Report Type: Spontaneous
  Country: US (occurrence: None)
  Receive Date: 20250312
  Receipt Date: 20250312
  Transmission Date: 20250409
  Serious: Yes (Life-Threatening, Hospitalization)
  Sender: FDA-CTU
  Company Number: None

PATIENT
  Age: 70 Year
  Sex: Male
  Weight: 78.75 kg

DRUGS (1)
  1. DONEPEZIL [Suspect]
     Active Substance: DONEPEZIL
     Indication: Memory impairment
     Dosage: FREQUENCY : DAILY;?
     Route: 048
     Dates: start: 20240701, end: 20250113

REACTIONS (5)
  - Atrioventricular block [None]
  - Syncope [None]
  - Head injury [None]
  - Subarachnoid haemorrhage [None]
  - Cardiac arrest [None]

NARRATIVE: CASE EVENT DATE: 20250112
